FAERS Safety Report 4839841-5 (Version None)
Quarter: 2005Q4

REPORT INFORMATION
  Report Type: 
  Country: None (occurrence: None)
  Receive Date: 20051129
  Receipt Date: 20051122
  Transmission Date: 20060501
  Serious: Yes (Hospitalization)
  Sender: FDA-Public Use
  Company Number: ES-SANOFI-SYNTHELABO-F01200502529

PATIENT
  Sex: Male
  Weight: 60.5 kg

DRUGS (9)
  1. OXALIPLATIN [Suspect]
     Indication: RECTAL CANCER
     Route: 041
     Dates: start: 20051114, end: 20051114
  2. CAPECITABINE [Suspect]
     Dosage: 2600 MG
     Route: 048
     Dates: start: 20051114, end: 20051117
  3. RADIOTHERAPY [Concomitant]
     Dosage: TOTAL DOSE OF 45 GY IN FRACTIONS OF 1.8 GY PER SESSION (TOTAL 5 SESSIONS)
     Dates: start: 20051114, end: 20051117
  4. OPIREN [Concomitant]
     Dosage: DOSE UNK
     Dates: start: 19950101
  5. TEBONIN [Concomitant]
     Dosage: 1 TABLET
     Route: 048
     Dates: start: 19990101
  6. CLOPIDOGREL BISULFATE [Concomitant]
     Dosage: 1 TABLET
     Route: 048
     Dates: start: 19990101
  7. HEMOVAS [Concomitant]
     Dosage: 1 TABLET
     Dates: start: 20020101
  8. SELOKEN [Concomitant]
     Dosage: 1 TABLET
     Route: 048
     Dates: start: 19990101
  9. NPH INSULIN [Concomitant]
     Dosage: 36-0-0
     Route: 058

REACTIONS (1)
  - BLINDNESS UNILATERAL [None]
